FAERS Safety Report 7020830-X (Version None)
Quarter: 2010Q3

REPORT INFORMATION
  Report Type: 
  Country: None (occurrence: None)
  Receive Date: 20100929
  Receipt Date: 20100917
  Transmission Date: 20110219
  Serious: Yes (Hospitalization)
  Sender: FDA-Public Use
  Company Number: PH-PFIZER INC-2010117779

PATIENT

DRUGS (1)
  1. SUTENT [Suspect]
     Dosage: 37.5 MG

REACTIONS (1)
  - MALIGNANT HYPERTENSION [None]
